FAERS Safety Report 13069076 (Version 1)
Quarter: 2016Q4

REPORT INFORMATION
  Report Type: Report from Study
  Country: US (occurrence: US)
  Receive Date: 20161228
  Receipt Date: 20161228
  Transmission Date: 20170207
  Serious: Yes (Other)
  Sender: FDA-Public Use
  Company Number: US-GILEAD-2016-0250535

PATIENT
  Age: 30 Year
  Sex: Female

DRUGS (18)
  1. SPIRONOLACTONE. [Concomitant]
     Active Substance: SPIRONOLACTONE
  2. AMBRISENTAN [Suspect]
     Active Substance: AMBRISENTAN
     Indication: PULMONARY HYPERTENSION
     Dosage: 5 MG, QD
     Route: 065
     Dates: start: 20160923
  3. POLYETHYLENE GLYCOL [Concomitant]
     Active Substance: POLYETHYLENE GLYCOLS
  4. HEPARIN [Concomitant]
     Active Substance: HEPARIN SODIUM
  5. METOPROLOL. [Concomitant]
     Active Substance: METOPROLOL
  6. SENNA                              /00142201/ [Concomitant]
     Active Substance: SENNA LEAF
  7. GABAPENTIN. [Concomitant]
     Active Substance: GABAPENTIN
  8. POTASSIUM CHLORIDE. [Concomitant]
     Active Substance: POTASSIUM CHLORIDE
  9. TYLENOL WITH CODEINE [Concomitant]
     Active Substance: ACETAMINOPHEN\CODEINE PHOSPHATE
  10. FUROSEMIDE. [Concomitant]
     Active Substance: FUROSEMIDE
  11. ADCIRCA [Suspect]
     Active Substance: TADALAFIL
     Indication: PULMONARY HYPERTENSION
     Dosage: 40 MG, QD
     Route: 065
     Dates: start: 20160923
  12. FERROUS SULFATE. [Concomitant]
     Active Substance: FERROUS SULFATE
  13. NYSTATIN. [Concomitant]
     Active Substance: NYSTATIN
  14. ACTIVASE [Concomitant]
     Active Substance: ALTEPLASE
  15. LIDOCAINE. [Concomitant]
     Active Substance: LIDOCAINE
  16. MAGNESIUM OXIDE. [Concomitant]
     Active Substance: MAGNESIUM OXIDE
  17. SODIUM CHLORIDE. [Concomitant]
     Active Substance: SODIUM CHLORIDE
  18. PROCHLORPERAZINE. [Concomitant]
     Active Substance: PROCHLORPERAZINE

REACTIONS (2)
  - Dizziness [Unknown]
  - Syncope [Unknown]
